FAERS Safety Report 5982036-2 (Version None)
Quarter: 2008Q4

REPORT INFORMATION
  Report Type: 
  Country: None (occurrence: None)
  Receive Date: 20081205
  Receipt Date: 20080226
  Transmission Date: 20090506
  Serious: No
  Sender: FDA-Public Use
  Company Number: US-AMGEN-KDL264144

PATIENT
  Sex: Male
  Weight: 115.3 kg

DRUGS (10)
  1. ENBREL [Suspect]
     Indication: PSORIATIC ARTHROPATHY
     Route: 058
     Dates: start: 20071016, end: 20080201
  2. GLUCOPHAGE [Concomitant]
     Route: 048
  3. TOPROL-XL [Concomitant]
     Route: 048
     Dates: start: 20070101
  4. FOSINOPRIL SODIUM [Concomitant]
     Route: 048
     Dates: start: 20060101
  5. HYDROCHLOROTHIAZIDE [Concomitant]
     Route: 048
     Dates: start: 19971201
  6. CITALOPRAM HYDROBROMIDE [Concomitant]
     Route: 048
  7. SIMVASTATIN [Concomitant]
     Route: 048
  8. LEXAPRO [Concomitant]
  9. TRIAMCINOLONE [Concomitant]
  10. LIDEX [Concomitant]

REACTIONS (4)
  - CELLULITIS [None]
  - DRUG INEFFECTIVE [None]
  - FALL [None]
  - RIB FRACTURE [None]
